FAERS Safety Report 7638903-7 (Version None)
Quarter: 2011Q3

REPORT INFORMATION
  Report Type: 
  Country: None (occurrence: None)
  Receive Date: 20110721
  Receipt Date: 20110708
  Transmission Date: 20111222
  Serious: Yes (Other)
  Sender: FDA-Public Use
  Company Number: TPA2011A03899

PATIENT
  Age: 78 Year
  Sex: Male

DRUGS (8)
  1. HYDROCHLOROTHIAZIDE [Concomitant]
  2. SIMVASTATIN [Concomitant]
  3. LEVOTHYROXINE SODIUM [Concomitant]
  4. ASPIRIN [Concomitant]
  5. LISINOPRIL [Concomitant]
  6. ACTOS [Suspect]
     Indication: TYPE 2 DIABETES MELLITUS
  7. LEVEMIR [Concomitant]
  8. GLIMEPIRIDE [Concomitant]

REACTIONS (1)
  - BLADDER CANCER [None]
